FAERS Safety Report 18009408 (Version 2)
Quarter: 2020Q3

REPORT INFORMATION
  Report Type: Report from Study
  Country: DE (occurrence: DE)
  Receive Date: 20200710
  Receipt Date: 20200722
  Transmission Date: 20201103
  Serious: Yes (Life-Threatening, Hospitalization, Other)
  Sender: FDA-Public Use
  Company Number: DE-BRISTOL-MYERS SQUIBB COMPANY-BMS-2020-022626

PATIENT
  Age: 36 Year
  Sex: Male
  Weight: 72 kg

DRUGS (18)
  1. PANTOPRAZOLE [Concomitant]
     Active Substance: PANTOPRAZOLE
     Indication: PRODUCT USED FOR UNKNOWN INDICATION
     Dosage: 40 MILLIGRAM
     Route: 065
     Dates: start: 20200527
  2. SPIRONOLACTONE. [Suspect]
     Active Substance: SPIRONOLACTONE
     Indication: CARDIAC FAILURE
     Dosage: 50 MILLIGRAM, QD
     Route: 048
     Dates: end: 20200526
  3. EPLERENONE. [Concomitant]
     Active Substance: EPLERENONE
     Indication: CARDIOVASCULAR DISORDER
     Dosage: 25 MILLIGRAM
     Route: 065
     Dates: start: 20200527
  4. NAC [ACETYLCYSTEINE] [Concomitant]
     Active Substance: ACETYLCYSTEINE
     Indication: PRODUCT USED FOR UNKNOWN INDICATION
     Dosage: 600 MILLIGRAM
     Route: 065
     Dates: start: 20200106
  5. DACLATASVIR DIHYDROCHLORIDE [Suspect]
     Active Substance: DACLATASVIR DIHYDROCHLORIDE
     Indication: HEPATITIS C
     Route: 065
  6. BISOPROLOL [Suspect]
     Active Substance: BISOPROLOL
     Indication: CARDIAC FAILURE
     Dosage: 5 MILLIGRAM, QD
     Route: 048
     Dates: end: 20200526
  7. TORASEMIDE [Suspect]
     Active Substance: TORSEMIDE
     Indication: CARDIAC FAILURE
     Dosage: 20 MILLIGRAM, QD
     Route: 048
     Dates: end: 20200526
  8. AMOXCLAV [AMOXICILLIN;CLAVULANIC ACID] [Concomitant]
     Active Substance: AMOXICILLIN\CLAVULANIC ACID
     Indication: PRODUCT USED FOR UNKNOWN INDICATION
     Dosage: 1500MG/375 MG
     Route: 065
     Dates: start: 20200116, end: 20200122
  9. ASPIRIN. [Concomitant]
     Active Substance: ASPIRIN
     Indication: CARDIOVASCULAR DISORDER
     Dosage: 100 MILLIGRAM
     Route: 065
     Dates: start: 20200527
  10. CIPROFLOXACINE [CIPROFLOXACIN] [Concomitant]
     Active Substance: CIPROFLOXACIN
     Indication: PRODUCT USED FOR UNKNOWN INDICATION
     Dosage: 500 MILLIGRAM
     Route: 065
     Dates: start: 20200527, end: 20200630
  11. ELIQUIS [Suspect]
     Active Substance: APIXABAN
     Indication: VENOUS THROMBOSIS
     Dosage: 10 MILLIGRAM, QD
     Route: 048
     Dates: start: 20190222, end: 20200526
  12. EPCLUSA [Concomitant]
     Active Substance: SOFOSBUVIR\VELPATASVIR
     Indication: CHRONIC HEPATITIS
     Dosage: 500 MG (400 MG SOFOSBUVIR, 100 MG VELPATASVIR) ONCE DAILY
     Route: 065
     Dates: start: 20191212, end: 20200304
  13. ENTRESTO [Concomitant]
     Active Substance: SACUBITRIL\VALSARTAN
     Indication: CARDIOVASCULAR DISORDER
     Dosage: 24/26MG
     Route: 065
     Dates: start: 20200527
  14. RAMIPRIL. [Suspect]
     Active Substance: RAMIPRIL
     Indication: CARDIAC FAILURE
     Dosage: 2.5 MILLIGRAM, QD
     Route: 048
     Dates: start: 20190222, end: 20200526
  15. TORASEMIDE [Suspect]
     Active Substance: TORSEMIDE
     Dosage: 10 MILLIGRAM
     Route: 048
     Dates: start: 20200527
  16. BIKTARVY [Concomitant]
     Active Substance: BICTEGRAVIR SODIUM\EMTRICITABINE\TENOFOVIR ALAFENAMIDE FUMARATE
     Indication: HIV INFECTION
     Dosage: 50 MG/200MG/25 MG
     Route: 065
     Dates: start: 20190222
  17. METAMIZOL [Concomitant]
     Active Substance: METAMIZOLE SODIUM
     Indication: PRODUCT USED FOR UNKNOWN INDICATION
     Dosage: AS NEEDED
     Route: 065
     Dates: start: 20200527
  18. METOPROLOL. [Concomitant]
     Active Substance: METOPROLOL
     Indication: CARDIOVASCULAR DISORDER
     Dosage: 23.75 MILLIGRAM
     Route: 065
     Dates: start: 20200527

REACTIONS (10)
  - Alcohol poisoning [Recovering/Resolving]
  - Off label use [Unknown]
  - Fall [Recovering/Resolving]
  - Splenic rupture [Recovering/Resolving]
  - Kidney rupture [Recovering/Resolving]
  - Retroperitoneal haematoma [Recovering/Resolving]
  - Rib fracture [Recovering/Resolving]
  - Mental disorder [Not Recovered/Not Resolved]
  - Toxicity to various agents [Recovering/Resolving]
  - Renal disorder [Recovering/Resolving]

NARRATIVE: CASE EVENT DATE: 20200526
